FAERS Safety Report 8440742-4 (Version None)
Quarter: 2012Q2

REPORT INFORMATION
  Report Type: 
  Country: None (occurrence: None)
  Receive Date: 20120615
  Receipt Date: 20120315
  Transmission Date: 20120825
  Serious: Yes (Life-Threatening, Hospitalization, Other)
  Sender: FDA-Public Use
  Company Number: US-ELI_LILLY_AND_COMPANY-US201203005192

PATIENT
  Sex: Female

DRUGS (1)
  1. CYMBALTA [Suspect]
     Dosage: UNK, UNKNOWN

REACTIONS (4)
  - ENDOTRACHEAL INTUBATION [None]
  - HOSPITALISATION [None]
  - WRONG TECHNIQUE IN DRUG USAGE PROCESS [None]
  - GASTROINTESTINAL TUBE INSERTION [None]
